FAERS Safety Report 4940683-0 (Version None)
Quarter: 2006Q1

REPORT INFORMATION
  Report Type: 
  Country: None (occurrence: None)
  Receive Date: 20060127
  Receipt Date: 20051011
  Transmission Date: 20060701
  Serious: Yes (Other)
  Sender: FDA-Public Use
  Company Number: 2005141790

PATIENT
  Age: 45 Year
  Sex: Female
  Weight: 63.5036 kg

DRUGS (4)
  1. LYRICA [Suspect]
     Indication: PAIN IN EXTREMITY
     Dosage: 150 MG (75 MG, 2 IN 1 D), ORAL
     Route: 048
     Dates: start: 20051010
  2. TOPROL-XL [Concomitant]
  3. PREMARIN [Concomitant]
  4. ZOLOFT [Concomitant]

REACTIONS (5)
  - APPETITE DISORDER [None]
  - DISTURBANCE IN ATTENTION [None]
  - DRY MOUTH [None]
  - OEDEMA PERIPHERAL [None]
  - PAIN [None]
